FAERS Safety Report 8173276-5 (Version None)
Quarter: 2012Q1

REPORT INFORMATION
  Report Type: 
  Country: None (occurrence: None)
  Receive Date: 20120229
  Receipt Date: 20120221
  Transmission Date: 20120608
  Serious: Yes (Hospitalization, Other)
  Sender: FDA-Public Use
  Company Number: US-JNJFOC-20100806136

PATIENT
  Sex: Female

DRUGS (22)
  1. LEVAQUIN [Suspect]
     Route: 048
     Dates: start: 20030101, end: 20030101
  2. LEVAQUIN [Suspect]
     Dosage: 150 ML
     Route: 042
  3. LEVAQUIN [Suspect]
     Route: 048
     Dates: start: 20030101, end: 20030101
  4. LISINOPRIL [Concomitant]
     Indication: HYPERTENSION
     Route: 065
  5. LEVAQUIN [Suspect]
     Indication: VULVAL ABSCESS
     Route: 048
  6. CARVEDILOL [Concomitant]
     Indication: BLOOD CHOLESTEROL DECREASED
     Route: 065
  7. METFORMIN HCL [Concomitant]
     Indication: DIABETES MELLITUS
     Route: 065
  8. GLYBURIDE [Concomitant]
     Indication: DIABETES MELLITUS
     Route: 065
  9. LEVAQUIN [Suspect]
     Route: 048
  10. CRESTOR [Concomitant]
     Indication: BLOOD CHOLESTEROL DECREASED
     Route: 065
  11. LEVAQUIN [Suspect]
     Dosage: 150 ML
     Route: 042
  12. VICTOZA [Concomitant]
     Indication: DIABETES MELLITUS
     Route: 065
  13. HUMALOG [Concomitant]
     Indication: DIABETES MELLITUS
     Route: 065
  14. LEVAQUIN [Suspect]
     Indication: SEPSIS
     Route: 048
  15. LEVAQUIN [Suspect]
     Dosage: 150 ML
     Route: 042
  16. HYDROCHLOROTHIAZIDE [Concomitant]
     Indication: HYPERTENSION
     Route: 065
  17. PRAVACHOL [Concomitant]
     Indication: BLOOD CHOLESTEROL DECREASED
     Route: 065
  18. LEVEMIR [Concomitant]
     Indication: DIABETES MELLITUS
     Route: 065
  19. LEVAQUIN [Suspect]
     Indication: STAPHYLOCOCCAL INFECTION
     Route: 048
     Dates: start: 20030101, end: 20030101
  20. VITAMINS NOS [Concomitant]
     Route: 065
  21. ADVAIR DISKUS 100/50 [Concomitant]
     Indication: ASTHMA
     Route: 065
  22. ALBUTEROL [Concomitant]
     Indication: ASTHMA
     Route: 065

REACTIONS (3)
  - ROTATOR CUFF REPAIR [None]
  - TENDON RUPTURE [None]
  - ROTATOR CUFF SYNDROME [None]
